FAERS Safety Report 14069344 (Version 1)
Quarter: 2017Q4

REPORT INFORMATION
  Report Type: Spontaneous
  Country: PT (occurrence: PT)
  Receive Date: 20171010
  Receipt Date: 20171010
  Transmission Date: 20180321
  Serious: Yes (Other)
  Sender: FDA-Public Use
  Company Number: PT-009507513-1703PRT009903

PATIENT
  Age: 62 Year
  Sex: Female

DRUGS (2)
  1. EZETROL [Suspect]
     Active Substance: EZETIMIBE
     Indication: HYPERCHOLESTEROLAEMIA
     Dosage: UNK, UNKNOWN
     Route: 048
  2. ATOZET [Suspect]
     Active Substance: ATORVASTATIN CALCIUM\EZETIMIBE
     Indication: HYPERCHOLESTEROLAEMIA
     Route: 048

REACTIONS (6)
  - Pain [Recovered/Resolved]
  - Blood creatine phosphokinase increased [Unknown]
  - Musculoskeletal stiffness [Recovered/Resolved]
  - Blood cholesterol decreased [Unknown]
  - Transient ischaemic attack [Unknown]
  - Musculoskeletal pain [Recovered/Resolved]

NARRATIVE: CASE EVENT DATE: 20170222
